FAERS Safety Report 18637432 (Version 1)
Quarter: 2020Q4

REPORT INFORMATION
  Report Type: Spontaneous
  Country: US (occurrence: US)
  Receive Date: 20201218
  Receipt Date: 20201218
  Transmission Date: 20210114
  Serious: No
  Sender: FDA-Public Use
  Company Number: US-REGENERON PHARMACEUTICALS, INC.-2020-73501

PATIENT

DRUGS (1)
  1. EYLEA [Suspect]
     Active Substance: AFLIBERCEPT
     Indication: CHORIORETINOPATHY
     Dosage: UNK
     Route: 031
     Dates: start: 20200826, end: 20200826

REACTIONS (2)
  - Off label use [Unknown]
  - Palpitations [Recovering/Resolving]

NARRATIVE: CASE EVENT DATE: 20200826
